FAERS Safety Report 7417039-4 (Version None)
Quarter: 2011Q2

REPORT INFORMATION
  Report Type: 
  Country: None (occurrence: None)
  Receive Date: 20110415
  Receipt Date: 20081001
  Transmission Date: 20111010
  Serious: Yes (Other)
  Sender: FDA-Public Use
  Company Number: US-BAYER-2011-009651

PATIENT
  Age: 75 Year
  Sex: Male
  Weight: 68.027 kg

DRUGS (20)
  1. ZINACEF [Concomitant]
     Dosage: 1.5 G, UNK
     Route: 042
     Dates: start: 20030805
  2. HEPARIN [Concomitant]
     Dosage: 10000 U, UNK
     Dates: start: 20030805, end: 20030805
  3. AVODART [Concomitant]
     Indication: PROSTATOMEGALY
     Route: 048
  4. RED BLOOD CELLS [Concomitant]
     Dosage: UNK
     Route: 042
     Dates: start: 20030805, end: 20030805
  5. ACETYLSALICYLIC ACID SRT [Concomitant]
     Dosage: 81 MG, UNK
     Route: 048
  6. VERSED [Concomitant]
     Dosage: 5 MG, UNK
     Dates: start: 20030805
  7. ALBUMIN (HUMAN) [Concomitant]
     Dosage: 12.5 G, UNK
     Dates: start: 20030805, end: 20030805
  8. TRASYLOL [Suspect]
     Dosage: 50 ML/HR INFUSION
     Route: 042
     Dates: start: 20030805, end: 20030805
  9. EPINEPHRINE [Concomitant]
     Dosage: 1:1000 1ML AMPULE MIXED IN 9CC NACL
     Route: 042
     Dates: start: 20030805
  10. HEPARIN [Concomitant]
     Dosage: 5,000 UNITS MIXED IN 500CC NACL
     Route: 042
     Dates: start: 20030805
  11. FRESH FROZEN PLASMA [Concomitant]
     Dosage: 1 U, UNK
     Route: 042
     Dates: start: 20030804, end: 20030804
  12. TOPROL-XL [Concomitant]
     Indication: HYPERTENSION
     Dosage: 25 MG, QD
     Route: 048
  13. PAPAVERINE [Concomitant]
     Dosage: 2 ML MIXED IN 30CC HEPARINIZED SALINE
     Dates: start: 20030805
  14. NITROGLYCERIN [Concomitant]
     Dosage: 2.4 CC/HOUR
     Route: 042
     Dates: start: 20030805
  15. ESMOLOL [Concomitant]
     Dosage: 100 MG, UNK
     Dates: start: 20030805, end: 20030805
  16. FRESH FROZEN PLASMA [Concomitant]
     Dosage: UNK
     Route: 042
     Dates: start: 20030805, end: 20030805
  17. TRASYLOL [Suspect]
     Indication: CORONARY ARTERY BYPASS
     Dosage: 200 ML, UNK, LOADING DOSE
     Route: 042
     Dates: start: 20030805, end: 20030805
  18. BACITRACIN [Concomitant]
     Dosage: 50,000 UNIT MIXED IN 1000CC NACL
     Dates: start: 20030805
  19. RED BLOOD CELLS [Concomitant]
     Dosage: 2 U, UNK
     Route: 042
     Dates: start: 20030804, end: 20030804
  20. LIDOCAINE [Concomitant]
     Dosage: 100 MG, UNK
     Dates: start: 20030805

REACTIONS (8)
  - ANXIETY [None]
  - BLINDNESS [None]
  - PAIN [None]
  - EMOTIONAL DISTRESS [None]
  - STRESS [None]
  - CEREBROVASCULAR ACCIDENT [None]
  - INJURY [None]
  - AMNESIA [None]
